FAERS Safety Report 7509931-7 (Version None)
Quarter: 2011Q2

REPORT INFORMATION
  Report Type: 
  Country: None (occurrence: None)
  Receive Date: 20110527
  Receipt Date: 20101214
  Transmission Date: 20111010
  Serious: Yes (Death, Hospitalization)
  Sender: FDA-Public Use
  Company Number: PHBS2000AU01019

PATIENT
  Sex: Male

DRUGS (12)
  1. FERROGRADUMET (FERROUS SULFATE) [Concomitant]
  2. METOCLOPRAMIDE HYDROCHLORIDE [Concomitant]
     Indication: VOMITING
  3. CHEMOTHERAPEUTICS NOS [Concomitant]
  4. METOCLOPRAMIDE HYDROCHLORIDE [Concomitant]
     Indication: NAUSEA
     Dosage: 30 MG, UNK
     Route: 048
  5. PREDNISOLONE [Concomitant]
     Route: 065
  6. CLOZARIL [Suspect]
     Dosage: 300 MG, UNK
     Route: 048
  7. SODIBIC (SODIUM BICARBONATE) [Concomitant]
  8. CLOZARIL [Suspect]
     Dosage: 400 MG, DAILY
     Route: 048
     Dates: start: 19991104
  9. FAMOTIDINE [Concomitant]
     Route: 065
  10. FOLIC ACID [Concomitant]
     Route: 065
  11. ALLOPURINOL [Concomitant]
     Route: 048
  12. MORPHINE SULFATE [Concomitant]
     Dosage: 20 MG, DAILY

REACTIONS (8)
  - ANAEMIA [None]
  - ALANINE AMINOTRANSFERASE INCREASED [None]
  - NEUTROPENIA [None]
  - LYMPHOMA [None]
  - BLOOD UREA INCREASED [None]
  - BLOOD URIC ACID INCREASED [None]
  - ASPARTATE AMINOTRANSFERASE INCREASED [None]
  - BLOOD CALCIUM INCREASED [None]
